FAERS Safety Report 20289154 (Version 4)
Quarter: 2022Q2

REPORT INFORMATION
  Report Type: Report from Study
  Country: US (occurrence: CN)
  Receive Date: 20220104
  Receipt Date: 20220519
  Transmission Date: 20220720
  Serious: Yes (Hospitalization)
  Sender: FDA-Public Use
  Company Number: US-JNJFOC-20211255932

PATIENT
  Age: 20 Year
  Sex: Male
  Weight: 54 kg

DRUGS (9)
  1. STELARA [Suspect]
     Active Substance: USTEKINUMAB
     Indication: Crohn^s disease
     Route: 058
     Dates: start: 20210721, end: 20211209
  2. STELARA [Suspect]
     Active Substance: USTEKINUMAB
  3. MIRIKIZUMAB [Suspect]
     Active Substance: MIRIKIZUMAB
     Indication: Crohn^s disease
     Route: 058
     Dates: start: 20210721, end: 20211209
  4. ENTERAL NUTRITIONAL POWDER(TP) [Concomitant]
     Indication: Crohn^s disease
     Route: 065
     Dates: start: 20210704
  5. MONTMORILLONITE [Concomitant]
     Active Substance: MONTMORILLONITE
     Indication: Crohn^s disease
     Dates: start: 20210705
  6. ERGOCALCIFEROL [Concomitant]
     Active Substance: ERGOCALCIFEROL
     Indication: Vitamin D deficiency
     Dates: start: 20210722
  7. TITANIUM DIOXIDE [Concomitant]
     Active Substance: TITANIUM DIOXIDE
     Indication: Haemorrhoids
  8. ZINC OXIDE [Concomitant]
     Active Substance: ZINC OXIDE
     Indication: Haemorrhoids
  9. TALC [Concomitant]
     Active Substance: TALC
     Indication: Haemorrhoids

REACTIONS (4)
  - Anal fistula [Recovering/Resolving]
  - Anal abscess [Recovering/Resolving]
  - Off label use [Unknown]
  - Product use issue [Unknown]

NARRATIVE: CASE EVENT DATE: 20210721
